FAERS Safety Report 9267568 (Version 7)
Quarter: 2016Q2

REPORT INFORMATION
  Report Type: Spontaneous
  Country: US (occurrence: US)
  Receive Date: 20130502
  Receipt Date: 20160412
  Transmission Date: 20160815
  Serious: Yes (Disabling, Other)
  Sender: FDA-Public Use
  Company Number: US-MERCK-1304USA017459

PATIENT
  Sex: Male
  Weight: 92.52 kg

DRUGS (2)
  1. PROPECIA [Suspect]
     Active Substance: FINASTERIDE
     Indication: ANDROGENETIC ALOPECIA
     Dosage: 1 MG,
     Route: 048
     Dates: start: 2000, end: 200210
  2. FINASTERIDE. [Suspect]
     Active Substance: FINASTERIDE
     Indication: ALOPECIA
     Dosage: 1.25 MG
     Route: 048

REACTIONS (36)
  - Alcoholism [Recovered/Resolved]
  - Alopecia [Unknown]
  - Nocturia [Unknown]
  - Nephrostomy [Unknown]
  - Nasal obstruction [Not Recovered/Not Resolved]
  - Pelvi-ureteric obstruction [Unknown]
  - Skin papilloma [Unknown]
  - Dyspnoea exertional [Unknown]
  - Arterial insufficiency [Recovered/Resolved]
  - Stress [Unknown]
  - Thrombophlebitis [Unknown]
  - Pyeloplasty [Unknown]
  - Erectile dysfunction [Not Recovered/Not Resolved]
  - Semen volume decreased [Not Recovered/Not Resolved]
  - Priapism [Recovered/Resolved]
  - Umbilical hernia [Unknown]
  - Papule [Unknown]
  - Cardiovascular disorder [Unknown]
  - Musculoskeletal discomfort [Unknown]
  - Wrong technique in product usage process [Unknown]
  - Pulmonary embolism [Unknown]
  - Fibrous histiocytoma [Unknown]
  - Hypertriglyceridaemia [Unknown]
  - Adverse drug reaction [Unknown]
  - Weight increased [Unknown]
  - Urinary straining [Unknown]
  - Stent placement [Unknown]
  - Libido decreased [Not Recovered/Not Resolved]
  - Eyelid disorder [Unknown]
  - Dermatofibroma removal [Unknown]
  - Sleep apnoea syndrome [Unknown]
  - Breast mass [Unknown]
  - Skin plaque [Unknown]
  - Chest pain [Unknown]
  - Sinus disorder [Not Recovered/Not Resolved]
  - Urinary hesitation [Unknown]

NARRATIVE: CASE EVENT DATE: 2001
